APPROVED DRUG PRODUCT: LAMOTRIGINE
Active Ingredient: LAMOTRIGINE
Strength: 200MG
Dosage Form/Route: TABLET, ORALLY DISINTEGRATING;ORAL
Application: A204158 | Product #004 | TE Code: AB
Applicant: PH HEALTH LTD
Approved: Oct 27, 2015 | RLD: No | RS: No | Type: RX